FAERS Safety Report 9140688 (Version 1)
Quarter: 2013Q1

REPORT INFORMATION
  Report Type: Spontaneous
  Country: JP (occurrence: JP)
  Receive Date: 20130305
  Receipt Date: 20130305
  Transmission Date: 20140127
  Serious: Yes (Other)
  Sender: FDA-Public Use
  Company Number: JP-009507513-1302JPN011158

PATIENT
  Age: 50 Year
  Sex: Female

DRUGS (1)
  1. PEPCID RPD [Suspect]
     Dosage: 40 MG, UNK
     Route: 048

REACTIONS (1)
  - Blood potassium decreased [Unknown]
